FAERS Safety Report 17277540 (Version 1)
Quarter: 2020Q1

REPORT INFORMATION
  Report Type: Spontaneous
  Country: US (occurrence: US)
  Receive Date: 20191227
  Receipt Date: 20191227
  Transmission Date: 20200409
  Serious: No
  Sender: FDA-Public Use
  Company Number: None

PATIENT
  Sex: Female

DRUGS (1)
  1. SIMPONI [Suspect]
     Active Substance: GOLIMUMAB
     Indication: COLITIS ULCERATIVE
     Dosage: ?          OTHER FREQUENCY:EVERY4WKS ;?
     Route: 058
     Dates: start: 201910

REACTIONS (4)
  - Stomatitis [None]
  - Secretion discharge [None]
  - Oropharyngeal pain [None]
  - Cough [None]
